FAERS Safety Report 5331029-7 (Version None)
Quarter: 2007Q2

REPORT INFORMATION
  Report Type: 
  Country: None (occurrence: None)
  Receive Date: 20070518
  Receipt Date: 20070518
  Transmission Date: 20071010
  Serious: No
  Sender: FDA-Public Use
  Company Number: None

PATIENT
  Age: 38 Year
  Sex: Female
  Weight: 65.7716 kg

DRUGS (1)
  1. NEURONTIN [Suspect]
     Indication: HOT FLUSH
     Dosage: 1 PILL DAILY

REACTIONS (1)
  - DYSPHEMIA [None]
